FAERS Safety Report 4286339-1 (Version None)
Quarter: 2004Q1

REPORT INFORMATION
  Report Type: 
  Country: None (occurrence: None)
  Receive Date: 20040121
  Receipt Date: 20030205
  Transmission Date: 20041129
  Serious: Yes (Hospitalization)
  Sender: FDA-Public Use
  Company Number: A03200300235

PATIENT
  Age: 82 Year
  Sex: Male

DRUGS (7)
  1. PLAVIX [Suspect]
     Indication: ATHEROSCLEROSIS
     Dosage: 75 MG QD - ORAL
     Route: 048
     Dates: start: 20020101, end: 20030109
  2. PLAVIX [Suspect]
     Indication: SICK SINUS SYNDROME
     Dosage: 75 MG QD - ORAL
     Route: 048
     Dates: start: 20020101, end: 20030109
  3. METOPROLOL SUCCINATE [Concomitant]
  4. ACETYLSALICYLIC ACID SRT [Concomitant]
  5. CELECOXIB [Concomitant]
  6. PARACETAMOL [Concomitant]
  7. FELODIPINE [Concomitant]

REACTIONS (4)
  - ANAEMIA [None]
  - CONTUSION [None]
  - THROMBOCYTOPENIC PURPURA [None]
  - WHITE BLOOD CELL COUNT DECREASED [None]
